FAERS Safety Report 5711045-3 (Version None)
Quarter: 2008Q2

REPORT INFORMATION
  Report Type: 
  Country: None (occurrence: None)
  Receive Date: 20080421
  Receipt Date: 20080408
  Transmission Date: 20081010
  Serious: Yes (Hospitalization, Disabling, Other)
  Sender: FDA-Public Use
  Company Number: US-ROCHE-401581

PATIENT
  Sex: Female
  Weight: 56.2 kg

DRUGS (3)
  1. PEGASYS [Suspect]
     Route: 058
     Dates: start: 20050202, end: 20050406
  2. COPEGUS [Suspect]
     Indication: HEPATITIS C
     Route: 048
     Dates: start: 20050202, end: 20050406
  3. METHAMPHETAMINE HYDROCHLORIDE [Suspect]
     Indication: DRUG USE FOR UNKNOWN INDICATION
     Route: 065

REACTIONS (17)
  - ADVERSE REACTION [None]
  - ALOPECIA [None]
  - AUTOIMMUNE THYROIDITIS [None]
  - BLOOD PRESSURE INCREASED [None]
  - CHEST PAIN [None]
  - CHILLS [None]
  - DELUSIONAL DISORDER, PERSECUTORY TYPE [None]
  - DEPENDENCE [None]
  - EYELID DISORDER [None]
  - ILL-DEFINED DISORDER [None]
  - LOCAL SWELLING [None]
  - LOSS OF CONSCIOUSNESS [None]
  - LYMPHADENOPATHY [None]
  - PAIN [None]
  - STRESS [None]
  - VISION BLURRED [None]
  - VISUAL DISTURBANCE [None]
